FAERS Safety Report 16708698 (Version 2)
Quarter: 2019Q4

REPORT INFORMATION
  Report Type: Spontaneous
  Country: US (occurrence: US)
  Receive Date: 20190816
  Receipt Date: 20191007
  Transmission Date: 20200122
  Serious: No
  Sender: FDA-Public Use
  Company Number: US-ASTRAZENECA-2019SF05715

PATIENT
  Sex: Male
  Weight: 47.6 kg

DRUGS (2)
  1. SPIRIVA [Concomitant]
     Active Substance: TIOTROPIUM BROMIDE MONOHYDRATE
     Indication: EMPHYSEMA
     Route: 055
  2. BEVESPI AEROSPHERE [Suspect]
     Active Substance: FORMOTEROL FUMARATE\GLYCOPYRROLATE
     Indication: EMPHYSEMA
     Dosage: 9 MCG / 4.8 MCG, 2 PUFFS TWICE DAILY
     Route: 055
     Dates: start: 2016

REACTIONS (8)
  - Loss of personal independence in daily activities [Unknown]
  - Body height decreased [Unknown]
  - Neuropathy peripheral [Unknown]
  - Intentional product misuse [Unknown]
  - Product dose omission [Unknown]
  - Weight decreased [Unknown]
  - Device issue [Unknown]
  - Dyspnoea [Unknown]
